FAERS Safety Report 18715561 (Version 2)
Quarter: 2021Q1

REPORT INFORMATION
  Report Type: Spontaneous
  Country: IT (occurrence: IT)
  Receive Date: 20210108
  Receipt Date: 20210115
  Transmission Date: 20210419
  Serious: Yes (Other)
  Sender: FDA-Public Use
  Company Number: IT-BEH-2021126963

PATIENT
  Age: 2 Year
  Sex: Male
  Weight: 15 kg

DRUGS (2)
  1. IDELVION [Suspect]
     Active Substance: COAGULATION FACTOR IX RECOMBINANT HUMAN
     Indication: FACTOR IX DEFICIENCY
     Dosage: 50 INTERNATIONAL UNIT/KILOGRAM, QOW
     Route: 065
  2. IDELVION [Suspect]
     Active Substance: COAGULATION FACTOR IX RECOMBINANT HUMAN
     Indication: FACTOR IX DEFICIENCY
     Dosage: 50 INTERNATIONAL UNIT/KILOGRAM, QOW
     Route: 065

REACTIONS (4)
  - Hypersensitivity [Recovered/Resolved]
  - Crying [Unknown]
  - Aspiration [Unknown]
  - Cough [Recovered/Resolved]
